FAERS Safety Report 8158012-0 (Version None)
Quarter: 2012Q1

REPORT INFORMATION
  Report Type: 
  Country: None (occurrence: None)
  Receive Date: 20120222
  Receipt Date: 20120213
  Transmission Date: 20120608
  Serious: Yes (Hospitalization, Other)
  Sender: FDA-Public Use
  Company Number: PHHY2011NL96460

PATIENT
  Sex: Male

DRUGS (6)
  1. ZOMETA [Suspect]
     Dosage: 4 MG / 5 ML, ONCE PER 28 DAYS
     Route: 042
     Dates: start: 20110928
  2. ZOMETA [Suspect]
     Dosage: 4 MG / 5 ML, ONCE PER 28 DAYS
     Route: 042
     Dates: start: 20111230
  3. ZOMETA [Suspect]
     Dosage: 4 MG,/100 ML ONCE FOR 28 DAYS
     Dates: start: 20120213
  4. ZOMETA [Suspect]
     Dosage: 4 MG / 5 ML, ONCE PER 28 DAYS
     Route: 042
     Dates: start: 20111028
  5. ZOMETA [Suspect]
     Indication: PROSTATE CANCER METASTATIC
     Dosage: 4 MG / 5 ML, ONCE PER 28 DAYS
     Route: 042
     Dates: start: 20110106
  6. ZOMETA [Suspect]
     Dosage: 4 MG / 5 ML, ONCE PER 28 DAYS
     Route: 042
     Dates: start: 20111202

REACTIONS (4)
  - EFFUSION [None]
  - GENERAL PHYSICAL HEALTH DETERIORATION [None]
  - DYSPNOEA [None]
  - HAEMOGLOBIN DECREASED [None]
